FAERS Safety Report 18259184 (Version 1)
Quarter: 2020Q3

REPORT INFORMATION
  Report Type: Spontaneous
  Country: FR (occurrence: FR)
  Receive Date: 20200911
  Receipt Date: 20200911
  Transmission Date: 20201103
  Serious: Yes (Hospitalization)
  Sender: FDA-Public Use
  Company Number: FR-MYLANLABS-09P-056-0791322-00

PATIENT
  Age: 50 Year
  Sex: Female

DRUGS (1)
  1. FLUVOXAMINE [Suspect]
     Active Substance: FLUVOXAMINE
     Indication: DEPRESSION
     Dosage: DAILY DOSE:  UNKNOWN
     Route: 065

REACTIONS (3)
  - Drug eruption [Recovering/Resolving]
  - Photosensitivity reaction [Recovering/Resolving]
  - Rash erythematous [Recovering/Resolving]
